APPROVED DRUG PRODUCT: METHSCOPOLAMINE BROMIDE
Active Ingredient: METHSCOPOLAMINE BROMIDE
Strength: 2.5MG
Dosage Form/Route: TABLET;ORAL
Application: A040624 | Product #001
Applicant: CHARTWELL RX SCIENCES LLC
Approved: Dec 28, 2006 | RLD: No | RS: No | Type: DISCN